FAERS Safety Report 6997622-0 (Version None)
Quarter: 2010Q3

REPORT INFORMATION
  Report Type: 
  Country: None (occurrence: None)
  Receive Date: 20100918
  Receipt Date: 20091109
  Transmission Date: 20110219
  Serious: No
  Sender: FDA-Public Use
  Company Number: US-WYE-H12093109

PATIENT
  Sex: Female

DRUGS (7)
  1. PRISTIQ [Suspect]
     Indication: DEPRESSION
     Route: 048
     Dates: start: 20090501
  2. PRISTIQ [Suspect]
     Indication: ANXIETY
  3. CYANOCOBALAMIN [Concomitant]
  4. VITAMIN D [Concomitant]
  5. ATENOLOL [Concomitant]
  6. ADDERALL 10 [Concomitant]
  7. SEROQUEL [Concomitant]

REACTIONS (3)
  - DRUG INEFFECTIVE [None]
  - FATIGUE [None]
  - MOVEMENT DISORDER [None]
